FAERS Safety Report 15686615 (Version 1)
Quarter: 2018Q4

REPORT INFORMATION
  Report Type: Spontaneous
  Country: US (occurrence: US)
  Receive Date: 20181204
  Receipt Date: 20181204
  Transmission Date: 20190205
  Serious: Yes (Hospitalization, Other)
  Sender: FDA-Public Use
  Company Number: US-MYLANLABS-2018M1087810

PATIENT

DRUGS (19)
  1. CLOBETASOL [Concomitant]
     Active Substance: CLOBETASOL
     Dosage: UNK
     Route: 065
  2. GOCOVRI [Suspect]
     Active Substance: AMANTADINE
     Indication: DYSKINESIA
     Dosage: 137 MILLIGRAM, QD
     Route: 048
     Dates: start: 20171227
  3. VITAMIN B1 [Concomitant]
     Active Substance: THIAMINE HYDROCHLORIDE
     Dosage: UNK
     Route: 065
  4. FLUOCINONIDE. [Concomitant]
     Active Substance: FLUOCINONIDE
     Dosage: UNK
     Route: 065
  5. MIRALAX [Concomitant]
     Active Substance: POLYETHYLENE GLYCOL 3350
     Dosage: UNK
     Route: 065
  6. TIMOLOL. [Concomitant]
     Active Substance: TIMOLOL
     Dosage: UNK
     Route: 065
  7. ASPIRIN                            /00002701/ [Concomitant]
     Active Substance: ASPIRIN
     Dosage: UNK
     Route: 065
  8. ZOFRAN [Concomitant]
     Active Substance: ONDANSETRON HYDROCHLORIDE
     Dosage: UNK
     Route: 065
  9. MELATONIN [Concomitant]
     Active Substance: MELATONIN
     Dosage: UNK
     Route: 065
  10. TYLENOL [Concomitant]
     Active Substance: ACETAMINOPHEN
     Dosage: UNK
     Route: 065
  11. VITAMIN C [Concomitant]
     Active Substance: ASCORBIC ACID
     Dosage: UNK
     Route: 065
  12. GOCOVRI [Suspect]
     Active Substance: AMANTADINE
     Dosage: 137 MILLIGRAM, QD
     Route: 048
     Dates: start: 20171227
  13. GLUCOSAMINE CHONDROITIN MSM [Concomitant]
     Dosage: UNK
     Route: 065
  14. KETOCONAZOLE. [Concomitant]
     Active Substance: KETOCONAZOLE
     Dosage: UNK
     Route: 065
  15. MIDODRINE [Suspect]
     Active Substance: MIDODRINE
     Indication: PRODUCT USED FOR UNKNOWN INDICATION
     Dosage: 5 MILLIGRAM, TID
     Route: 065
     Dates: end: 2018
  16. AZILECT [Suspect]
     Active Substance: RASAGILINE MESYLATE
     Indication: PRODUCT USED FOR UNKNOWN INDICATION
     Dosage: UNK
     Route: 065
  17. CARBIDOPA AND LEVODOPA [Concomitant]
     Active Substance: CARBIDOPA\LEVODOPA
     Dosage: UNK
     Route: 065
  18. VITAMIN D                          /00107901/ [Concomitant]
     Active Substance: ERGOCALCIFEROL
     Dosage: UNK
     Route: 065
  19. LUMIGAN [Concomitant]
     Active Substance: BIMATOPROST
     Dosage: UNK

REACTIONS (25)
  - Amnesia [Unknown]
  - Dysphonia [Unknown]
  - Bradykinesia [Unknown]
  - Fatigue [Unknown]
  - Dry mouth [Unknown]
  - Dehydration [Recovered/Resolved]
  - Pancreatitis [Unknown]
  - Drooling [Unknown]
  - Dyspnoea [Unknown]
  - Chest discomfort [Unknown]
  - Dysarthria [Unknown]
  - Somnolence [Not Recovered/Not Resolved]
  - Hypophagia [Unknown]
  - Prostatomegaly [Unknown]
  - Polyuria [Unknown]
  - Dysphagia [Unknown]
  - Headache [Unknown]
  - Orthostatic hypotension [Unknown]
  - Feeling abnormal [Unknown]
  - Salivary hypersecretion [Unknown]
  - Decreased appetite [Recovering/Resolving]
  - Disturbance in attention [Unknown]
  - Tremor [Unknown]
  - Bundle branch block right [Unknown]
  - Abnormal dreams [Unknown]

NARRATIVE: CASE EVENT DATE: 2018
